FAERS Safety Report 5593343-X (Version None)
Quarter: 2008Q1

REPORT INFORMATION
  Report Type: 
  Country: None (occurrence: None)
  Receive Date: 20080116
  Receipt Date: 20080108
  Transmission Date: 20080703
  Serious: Yes (Hospitalization)
  Sender: FDA-Public Use
  Company Number: FR-ASTRAZENECA-2008CG00040

PATIENT
  Age: 24248 Day
  Sex: Male
  Weight: 71 kg

DRUGS (7)
  1. HYTACAND [Suspect]
     Dosage: 16 + 12.5 MG DAILY
     Route: 048
     Dates: end: 20071204
  2. IBUPROFEN [Interacting]
     Route: 048
     Dates: start: 20071128, end: 20071129
  3. MEDIATENSYL [Concomitant]
     Route: 048
  4. LERCAN [Concomitant]
     Route: 048
     Dates: end: 20070701
  5. PLAVIX [Concomitant]
     Route: 048
  6. ZYLORIC [Concomitant]
     Route: 048
  7. STILNOX [Concomitant]
     Route: 048

REACTIONS (2)
  - DRUG INTERACTION [None]
  - RENAL IMPAIRMENT [None]
